FAERS Safety Report 8603434 (Version 6)
Quarter: 2013Q2

REPORT INFORMATION
  Report Type: Report from Study
  Country: BR (occurrence: BR)
  Receive Date: 20120607
  Receipt Date: 20130426
  Transmission Date: 20140414
  Serious: Yes (Hospitalization, Other)
  Sender: FDA-Public Use
  Company Number: PHHO2012BR008513

PATIENT
  Age: 62 Year
  Sex: Male
  Weight: 110 kg

DRUGS (7)
  1. CERTICAN [Suspect]
     Indication: RENAL TRANSPLANT
     Dosage: 2 MG, BID
     Route: 048
     Dates: start: 20110908, end: 20120524
  2. MYFORTIC [Suspect]
     Indication: RENAL TRANSPLANT
     Dosage: 360 MG, BID
     Route: 048
     Dates: start: 20110721, end: 20120521
  3. MYFORTIC [Suspect]
     Dosage: 360 MG, BID
     Route: 048
     Dates: start: 20121024, end: 20121115
  4. MYFORTIC [Suspect]
     Dosage: 360 MG, BID
     Route: 048
     Dates: end: 20121212
  5. PREDNISONE [Suspect]
     Indication: RENAL TRANSPLANT
     Dosage: 10 MG, QD
     Route: 048
     Dates: start: 20110720, end: 20120521
  6. PREDNISONE [Suspect]
     Dosage: 30 MG, QD
     Route: 048
     Dates: start: 20120603, end: 20120915
  7. PREDNISONE [Suspect]
     Dosage: 10 MG, QD
     Dates: end: 20120927

REACTIONS (6)
  - Transitional cell carcinoma [Not Recovered/Not Resolved]
  - Urinary tract infection [Recovered/Resolved]
  - Urosepsis [Recovered/Resolved]
  - Kidney transplant rejection [Not Recovered/Not Resolved]
  - Renal graft loss [Not Recovered/Not Resolved]
  - Device related infection [Recovered/Resolved]
